FAERS Safety Report 6163997-8 (Version None)
Quarter: 2009Q2

REPORT INFORMATION
  Report Type: 
  Country: None (occurrence: None)
  Receive Date: 20090420
  Receipt Date: 20090409
  Transmission Date: 20091009
  Serious: Yes (Hospitalization)
  Sender: FDA-Public Use
  Company Number: 2009-01448

PATIENT
  Age: 67 Year
  Sex: Male
  Weight: 55 kg

DRUGS (3)
  1. VELCADE [Suspect]
     Indication: MULTIPLE MYELOMA
     Dosage: 1.3 MG/M2 UNK INTRAVENOUS
     Route: 042
     Dates: start: 20090306, end: 20090409
  2. MELPHALAN (MELPHALAN) [Suspect]
     Indication: MULTIPLE MYELOMA
     Dosage: 8 MG/M2 UNK ORAL
     Route: 048
     Dates: start: 20090306, end: 20090309
  3. PREDNISOLONE [Suspect]
     Indication: MULTIPLE MYELOMA
     Dosage: 60 MG/M2, UNK, ORAL
     Route: 048
     Dates: start: 20090306, end: 20090309

REACTIONS (1)
  - ERYTHEMA MULTIFORME [None]
